FAERS Safety Report 10179090 (Version 1)
Quarter: 2014Q2

REPORT INFORMATION
  Report Type: Spontaneous
  Country: US (occurrence: US)
  Receive Date: 20140519
  Receipt Date: 20140519
  Transmission Date: 20141212
  Serious: No
  Sender: FDA-Public Use
  Company Number: US-BIOGENIDEC-2014BI042791

PATIENT
  Age: 75 Year
  Sex: Male

DRUGS (4)
  1. TECFIDERA [Suspect]
     Indication: MULTIPLE SCLEROSIS
     Route: 048
     Dates: start: 20140214
  2. AMPYRA [Concomitant]
  3. SYTHROID [Concomitant]
  4. ASPIRIN ADULT LOW STRENGTH [Concomitant]

REACTIONS (1)
  - Adverse event [Unknown]
